FAERS Safety Report 8109101-8 (Version None)
Quarter: 2012Q1

REPORT INFORMATION
  Report Type: 
  Country: None (occurrence: None)
  Receive Date: 20120202
  Receipt Date: 20120109
  Transmission Date: 20120608
  Serious: No
  Sender: FDA-Public Use
  Company Number: US-AMGEN-USASP2011069512

PATIENT
  Age: 55 Year
  Sex: Male
  Weight: 90.703 kg

DRUGS (2)
  1. ENBREL [Suspect]
     Indication: PSORIATIC ARTHROPATHY
     Dosage: 50 MG, QWK
     Route: 058
     Dates: start: 20110426
  2. ENBREL [Suspect]
     Indication: PSORIASIS

REACTIONS (3)
  - ALOPECIA [None]
  - EYE PAIN [None]
  - HEADACHE [None]
